FAERS Safety Report 6143851-8 (Version None)
Quarter: 2009Q2

REPORT INFORMATION
  Report Type: 
  Country: None (occurrence: None)
  Receive Date: 20090403
  Receipt Date: 20090327
  Transmission Date: 20091009
  Serious: Yes (Hospitalization)
  Sender: FDA-Public Use
  Company Number: CH-MERCK-0903CHE00022

PATIENT
  Age: 71 Year
  Sex: Female

DRUGS (5)
  1. FOSAMAX [Suspect]
     Indication: OSTEOPOROSIS POSTMENOPAUSAL
     Route: 048
     Dates: start: 19990101, end: 20050101
  2. IBANDRONATE SODIUM [Suspect]
     Indication: OSTEOPOROSIS POSTMENOPAUSAL
     Route: 048
     Dates: start: 20050101
  3. METFORMIN HYDROCHLORIDE [Concomitant]
     Route: 048
     Dates: start: 20090101
  4. ALPRAZOLAM [Concomitant]
     Route: 048
  5. PAROXETINE HYDROCHLORIDE [Concomitant]
     Indication: DEPRESSION
     Route: 048

REACTIONS (1)
  - FEMUR FRACTURE [None]
